FAERS Safety Report 6276955-X (Version None)
Quarter: 2009Q3

REPORT INFORMATION
  Report Type: 
  Country: None (occurrence: None)
  Receive Date: 20090722
  Receipt Date: 20090105
  Transmission Date: 20100115
  Serious: No
  Sender: FDA-Public Use
  Company Number: US-BRISTOL-MYERS SQUIBB COMPANY-14389191

PATIENT
  Age: 66 Year
  Sex: Female
  Weight: 59 kg

DRUGS (5)
  1. COUMADIN [Suspect]
     Indication: ATRIAL FIBRILLATION
     Dosage: 1 DOSAGE FORM=5MG-10MG.
     Dates: start: 20080601, end: 20081021
  2. SOTALOL HCL [Suspect]
     Indication: ATRIAL FIBRILLATION
     Route: 048
  3. XANAX [Concomitant]
  4. MAGNESIUM [Concomitant]
  5. FOLIC ACID [Concomitant]

REACTIONS (4)
  - ALOPECIA [None]
  - INTERNATIONAL NORMALISED RATIO ABNORMAL [None]
  - PRURITUS [None]
  - RASH MACULAR [None]
